FAERS Safety Report 7248867-6 (Version None)
Quarter: 2011Q1

REPORT INFORMATION
  Report Type: 
  Country: None (occurrence: None)
  Receive Date: 20110128
  Receipt Date: 20110120
  Transmission Date: 20110831
  Serious: Yes (Other)
  Sender: FDA-Public Use
  Company Number: US-US-EMD SERONO, INC.-234804J09USA

PATIENT
  Sex: Female

DRUGS (4)
  1. SOLU-MEDROL [Concomitant]
  2. PREVACID [Concomitant]
     Indication: ABDOMINAL DISTENSION
  3. REBIF [Suspect]
     Indication: MULTIPLE SCLEROSIS
     Route: 058
     Dates: start: 20031217
  4. PRILOSEC [Concomitant]
     Indication: ABDOMINAL DISTENSION

REACTIONS (4)
  - CATARACT [None]
  - BENIGN SALIVARY GLAND NEOPLASM [None]
  - KERATOCONJUNCTIVITIS SICCA [None]
  - VISUAL FIELD DEFECT [None]
